FAERS Safety Report 9259977 (Version 1)
Quarter: 2013Q2

REPORT INFORMATION
  Report Type: Spontaneous
  Country: US (occurrence: US)
  Receive Date: 20130429
  Receipt Date: 20130429
  Transmission Date: 20140414
  Serious: Yes (Hospitalization, Disabling)
  Sender: FDA-Public Use
  Company Number: US-JNJFOC-20130409614

PATIENT
  Sex: Male

DRUGS (1)
  1. LEVAQUIN [Suspect]
     Indication: LOCALISED INFECTION
     Route: 065

REACTIONS (9)
  - Poisoning [Unknown]
  - Abasia [Unknown]
  - Balance disorder [Unknown]
  - Weight decreased [Unknown]
  - Expressive language disorder [Unknown]
  - Gait disturbance [Unknown]
  - Disorientation [Unknown]
  - Eating disorder [Recovering/Resolving]
  - Pruritus [Unknown]
